FAERS Safety Report 23032148 (Version 2)
Quarter: 2023Q4

REPORT INFORMATION
  Report Type: Report from Study
  Country: GR (occurrence: GR)
  Receive Date: 20231005
  Receipt Date: 20231016
  Transmission Date: 20240110
  Serious: Yes (Hospitalization, Congenital Anomaly)
  Sender: FDA-Public Use
  Company Number: GR-Merck Healthcare KGaA-2023478127

PATIENT
  Sex: Male
  Weight: 4 kg

DRUGS (1)
  1. REBIF [Suspect]
     Active Substance: INTERFERON BETA-1A
     Indication: Multiple sclerosis
     Route: 064

REACTIONS (2)
  - Cleft lip and palate [Not Recovered/Not Resolved]
  - Foetal exposure during pregnancy [Recovered/Resolved]
